FAERS Safety Report 6014030-X (Version None)
Quarter: 2008Q4

REPORT INFORMATION
  Report Type: 
  Country: None (occurrence: None)
  Receive Date: 20081219
  Receipt Date: 20080102
  Transmission Date: 20090506
  Serious: No
  Sender: FDA-Public Use
  Company Number: A0690615A

PATIENT
  Age: 80 Year
  Sex: Male

DRUGS (2)
  1. AVODART [Suspect]
     Indication: DRUG USE FOR UNKNOWN INDICATION
     Route: 048
  2. FLOMAX [Concomitant]
     Dosage: .4MG PER DAY
     Route: 048

REACTIONS (1)
  - URINE ODOUR ABNORMAL [None]
